FAERS Safety Report 8252893-8 (Version None)
Quarter: 2012Q2

REPORT INFORMATION
  Report Type: 
  Country: None (occurrence: None)
  Receive Date: 20120402
  Receipt Date: 20120119
  Transmission Date: 20120825
  Serious: No
  Sender: FDA-Public Use
  Company Number: US-ABBOTT-12P-163-0895467-00

PATIENT
  Sex: Male
  Weight: 81.72 kg

DRUGS (4)
  1. ANDROGEL [Suspect]
     Indication: BLOOD TESTOSTERONE DECREASED
     Dosage: 4 PUMPS PER DAY
     Dates: start: 20110101
  2. ANDROGEL [Suspect]
     Dosage: 2 PUMPS PER DAY
  3. UNKNOWN MEDICATIONS [Concomitant]
     Indication: PRODUCT USED FOR UNKNOWN INDICATION
  4. ANDROGEL [Suspect]
     Dosage: 4 PUMPS PER DAY

REACTIONS (4)
  - BLOOD TESTOSTERONE DECREASED [None]
  - APPLICATION SITE RASH [None]
  - ERYTHEMA [None]
  - APPLICATION SITE DISCOLOURATION [None]
